FAERS Safety Report 9850057 (Version 2)
Quarter: 2014Q1

REPORT INFORMATION
  Report Type: Spontaneous
  Country: US (occurrence: US)
  Receive Date: 20140128
  Receipt Date: 20140128
  Transmission Date: 20141002
  Serious: Yes (Hospitalization)
  Sender: FDA-Public Use
  Company Number: US-AMGEN-USASP2013089074

PATIENT
  Sex: Female

DRUGS (2)
  1. NEULASTA [Suspect]
     Indication: PRODUCT USED FOR UNKNOWN INDICATION
     Dosage: UNK
     Route: 065
  2. GEMZAR [Concomitant]
     Dosage: UNK

REACTIONS (4)
  - Pulmonary oedema [Unknown]
  - Generalised oedema [Unknown]
  - Fluid overload [Unknown]
  - Swelling [Unknown]
